FAERS Safety Report 7930267-4 (Version None)
Quarter: 2011Q4

REPORT INFORMATION
  Report Type: 
  Country: None (occurrence: None)
  Receive Date: 20111118
  Receipt Date: 20111118
  Transmission Date: 20120403
  Serious: Yes (Hospitalization)
  Sender: FDA-Public Use
  Company Number: None

PATIENT
  Age: 70 Year
  Sex: Female
  Weight: 73.9363 kg

DRUGS (10)
  1. MULTI-VITAMINS [Concomitant]
  2. CALCIUM CITRATE [Concomitant]
  3. DEXAMETHASONE [Concomitant]
  4. SYNTHROID [Concomitant]
  5. TEMOZOLOMIDE [Suspect]
     Indication: GLIOBLASTOMA
     Dosage: 150MG, PO, QD
     Route: 048
     Dates: start: 20110610, end: 20111101
  6. BACTRIM DS [Concomitant]
  7. NYSTATIN [Concomitant]
  8. OMEPRAZOLE [Concomitant]
  9. METOPROLOL TARTRATE [Concomitant]
  10. ZOFRAN [Concomitant]

REACTIONS (2)
  - GRAND MAL CONVULSION [None]
  - PULMONARY EMBOLISM [None]
